FAERS Safety Report 17731681 (Version 1)
Quarter: 2020Q2

REPORT INFORMATION
  Report Type: Report from Study
  Country: CO (occurrence: CO)
  Receive Date: 20200501
  Receipt Date: 20200501
  Transmission Date: 20200714
  Serious: Yes (Other)
  Sender: FDA-Public Use
  Company Number: CO-ROCHE-2588365

PATIENT
  Age: 54 Year
  Sex: Male

DRUGS (5)
  1. DOXORUBICIN [Concomitant]
     Active Substance: DOXORUBICIN
     Indication: DIFFUSE LARGE B-CELL LYMPHOMA
  2. CYCLOPHOSPHAMIDE. [Concomitant]
     Active Substance: CYCLOPHOSPHAMIDE
     Indication: DIFFUSE LARGE B-CELL LYMPHOMA
  3. RITUXIMAB. [Suspect]
     Active Substance: RITUXIMAB
     Indication: DIFFUSE LARGE B-CELL LYMPHOMA
     Route: 065
  4. VINCRISTINE [Concomitant]
     Active Substance: VINCRISTINE
     Indication: DIFFUSE LARGE B-CELL LYMPHOMA
  5. PREDNISONE. [Concomitant]
     Active Substance: PREDNISONE
     Indication: DIFFUSE LARGE B-CELL LYMPHOMA

REACTIONS (12)
  - Fatigue [Unknown]
  - Amnesia [Unknown]
  - Decreased immune responsiveness [Unknown]
  - Cachexia [Unknown]
  - Madarosis [Unknown]
  - Somnolence [Unknown]
  - Ageusia [Unknown]
  - Yellow skin [Unknown]
  - Pyrexia [Recovered/Resolved]
  - Irritability [Unknown]
  - Alopecia [Unknown]
  - Muscle atrophy [Unknown]
